FAERS Safety Report 7550697-2 (Version None)
Quarter: 2011Q2

REPORT INFORMATION
  Report Type: 
  Country: None (occurrence: None)
  Receive Date: 20110616
  Receipt Date: 20110607
  Transmission Date: 20111010
  Serious: Yes (Hospitalization, Other)
  Sender: FDA-Public Use
  Company Number: US-ELI_LILLY_AND_COMPANY-US201106003015

PATIENT
  Sex: Male

DRUGS (2)
  1. HUMALOG [Suspect]
     Indication: DIABETES MELLITUS
     Dosage: 30 U, EACH MORNING
  2. LANTUS [Concomitant]
     Dosage: UNK, QD

REACTIONS (11)
  - DIABETES MELLITUS INADEQUATE CONTROL [None]
  - VISUAL IMPAIRMENT [None]
  - SPEECH DISORDER [None]
  - DIABETIC RETINOPATHY [None]
  - CEREBROVASCULAR ACCIDENT [None]
  - BLOOD GLUCOSE INCREASED [None]
  - COGNITIVE DISORDER [None]
  - GLAUCOMA [None]
  - TREATMENT NONCOMPLIANCE [None]
  - INCORRECT STORAGE OF DRUG [None]
  - HYPOGLYCAEMIA UNAWARENESS [None]
